FAERS Safety Report 10662623 (Version 3)
Quarter: 2014Q4

REPORT INFORMATION
  Report Type: Spontaneous
  Country: GB (occurrence: GB)
  Receive Date: 20141218
  Receipt Date: 20141224
  Transmission Date: 20150529
  Serious: Yes (Other)
  Sender: FDA-Public Use
  Company Number: GB-PFIZER INC-044-1700-M0100001

PATIENT
  Age: 31 Year
  Sex: Female
  Weight: 54 kg

DRUGS (9)
  1. VIRACEPT [Suspect]
     Active Substance: NELFINAVIR MESYLATE
     Indication: ANTIVIRAL TREATMENT
     Dosage: UNK
     Route: 048
  2. NORVIR [Suspect]
     Active Substance: RITONAVIR
     Indication: ANTIVIRAL TREATMENT
     Dosage: UNK
     Route: 048
     Dates: start: 19990602
  3. COTRIMOXAZOLE [Concomitant]
     Active Substance: SULFAMETHOXAZOLE\TRIMETHOPRIM
     Dosage: UNK
  4. CRIXIVAN [Suspect]
     Active Substance: INDINAVIR SULFATE
     Indication: ANTIVIRAL TREATMENT
     Dosage: UNK
     Route: 048
     Dates: start: 19990602
  5. VIDEX [Suspect]
     Active Substance: DIDANOSINE
     Indication: ANTIVIRAL TREATMENT
     Dosage: UNK
     Route: 048
     Dates: start: 19990602
  6. ERYTHROMYCIN. [Concomitant]
     Active Substance: ERYTHROMYCIN
     Dosage: UNK
  7. LOPERAMIDE [Concomitant]
     Active Substance: LOPERAMIDE
     Dosage: UNK
  8. ACYCLOVIR. [Concomitant]
     Active Substance: ACYCLOVIR
     Dosage: UNK
  9. RESCRIPTOR [Suspect]
     Active Substance: DELAVIRDINE MESYLATE
     Indication: ANTIVIRAL TREATMENT
     Dosage: 1200 MG, DAILY
     Route: 048
     Dates: start: 19990602

REACTIONS (1)
  - Campylobacter gastroenteritis [Unknown]

NARRATIVE: CASE EVENT DATE: 199907
